FAERS Safety Report 6152587-9 (Version None)
Quarter: 2009Q2

REPORT INFORMATION
  Report Type: 
  Country: None (occurrence: None)
  Receive Date: 20090413
  Receipt Date: 20090408
  Transmission Date: 20091009
  Serious: Yes (Hospitalization)
  Sender: FDA-Public Use
  Company Number: US-BRISTOL-MYERS SQUIBB COMPANY-14581490

PATIENT
  Age: 65 Year
  Sex: Male
  Weight: 93 kg

DRUGS (3)
  1. ERBITUX [Suspect]
     Indication: PHARYNGEAL CANCER STAGE UNSPECIFIED
     Dosage: STARTED ON 02FEB09;LOADING DOSE:800MG;09FEB(500MG);16FEB(500MG);23FEB09(500MG).
     Dates: start: 20090223, end: 20090223
  2. CISPLATIN [Suspect]
     Indication: PHARYNGEAL CANCER STAGE UNSPECIFIED
     Dates: start: 20090209, end: 20090209
  3. RADIATION THERAPY [Suspect]
     Indication: PHARYNGEAL CANCER STAGE UNSPECIFIED
     Dosage: 1 DOSAGE FORM=2800CGY;NO OF FRACTIONS:15;STARTED ON 02FEB09.
     Dates: start: 20090224, end: 20090224

REACTIONS (5)
  - DEHYDRATION [None]
  - DYSPHAGIA [None]
  - GASTRITIS [None]
  - MUCOSAL INFLAMMATION [None]
  - WEIGHT DECREASED [None]
